FAERS Safety Report 17482093 (Version 1)
Quarter: 2020Q1

REPORT INFORMATION
  Report Type: Report from Study
  Country: GB (occurrence: GB)
  Receive Date: 20200302
  Receipt Date: 20200302
  Transmission Date: 20200409
  Serious: Yes (Other)
  Sender: FDA-Public Use
  Company Number: GB-GLAXOSMITHKLINE-GB2020EME034690

PATIENT
  Age: 82 Year
  Sex: Female

DRUGS (1)
  1. FLUTICASONE FUR+UMECLIDINIUM+VILANTEROL [Suspect]
     Active Substance: FLUTICASONE FUROATE\UMECLIDINIUM BROMIDE\VILANTEROL TRIFENATATE
     Indication: CHRONIC OBSTRUCTIVE PULMONARY DISEASE
     Dosage: 1 PUFF(S), BID

REACTIONS (8)
  - Back pain [Unknown]
  - Arthralgia [Unknown]
  - Nasal congestion [Unknown]
  - Neck pain [Unknown]
  - Dysphonia [Unknown]
  - Major depression [Unknown]
  - Vision blurred [Unknown]
  - Suicidal ideation [Unknown]
